FAERS Safety Report 4276343-1 (Version None)
Quarter: 2004Q1

REPORT INFORMATION
  Report Type: 
  Country: None (occurrence: None)
  Receive Date: 20040116
  Receipt Date: 20040107
  Transmission Date: 20041129
  Serious: Yes (Death)
  Sender: FDA-Public Use
  Company Number: 2003040619

PATIENT
  Age: 51 Year
  Sex: Female
  Weight: 84.369 kg

DRUGS (14)
  1. ZITHROMAX [Suspect]
     Indication: COUGH
     Dates: start: 20030121
  2. ZITHROMAX [Suspect]
     Indication: HOARSENESS
     Dates: start: 20030121
  3. ZITHROMAX [Suspect]
     Indication: ILL-DEFINED DISORDER
     Dates: start: 20030121
  4. ZITHROMAX [Suspect]
     Indication: RHINORRHOEA
     Dates: start: 20030121
  5. ETANERCEPT (ETANERCEPT) [Suspect]
     Indication: ILL-DEFINED DISORDER
  6. ALL OTHER THERAPEUTIC PRODUCTS [Concomitant]
  7. SULFASALAZINE [Concomitant]
  8. FLUOXETINE [Concomitant]
  9. CLONAZEPAM [Concomitant]
  10. ANOVLAR (NORETHISTERONE ACETATE, ETHINYLESTRADIOL) [Concomitant]
  11. MELATONIN (MELATONIN) [Concomitant]
  12. OMEPRAZOLE [Concomitant]
  13. ARTHROTEC [Concomitant]
  14. FERROUS SULFATE TAB [Concomitant]

REACTIONS (4)
  - COUGH [None]
  - FEELING ABNORMAL [None]
  - HOARSENESS [None]
  - RHINORRHOEA [None]
